FAERS Safety Report 5813293-0 (Version None)
Quarter: 2008Q3

REPORT INFORMATION
  Report Type: 
  Country: None (occurrence: None)
  Receive Date: 20080717
  Receipt Date: 20080707
  Transmission Date: 20090109
  Serious: Yes (Hospitalization)
  Sender: FDA-Public Use
  Company Number: FR-JNJFOC-20080606526

PATIENT
  Sex: Female

DRUGS (1)
  1. ZALDIAR [Suspect]
     Indication: SUICIDE ATTEMPT
     Dosage: 10 TABLETS
     Route: 048

REACTIONS (4)
  - INTENTIONAL OVERDOSE [None]
  - MIOSIS [None]
  - SOMNOLENCE [None]
  - SUICIDE ATTEMPT [None]
